FAERS Safety Report 5706540-7 (Version None)
Quarter: 2008Q2

REPORT INFORMATION
  Report Type: 
  Country: None (occurrence: None)
  Receive Date: 20080414
  Receipt Date: 20080331
  Transmission Date: 20081010
  Serious: Yes (Other)
  Sender: FDA-Public Use
  Company Number: MPS1-1000045

PATIENT

DRUGS (1)
  1. ALDURAZYME (LARONIDASE) CONCENTRATE FOR SOLUTION FOR INFUSION [Suspect]
     Indication: MUCOPOLYSACCHARIDOSIS I

REACTIONS (2)
  - BONE MARROW TRANSPLANT [None]
  - VENOOCCLUSIVE DISEASE [None]
